FAERS Safety Report 17589104 (Version 2)
Quarter: 2020Q3

REPORT INFORMATION
  Report Type: Spontaneous
  Country: US (occurrence: US)
  Receive Date: 20200327
  Receipt Date: 20200706
  Transmission Date: 20201102
  Serious: Yes (Hospitalization, Other)
  Sender: FDA-Public Use
  Company Number: US-DRREDDYS-USA/USA/20/0121090

PATIENT
  Age: 10 Year
  Sex: Male

DRUGS (6)
  1. DOXORUBICIN HYDROCHLORIDE LIPOSOME INJECTION 20 MG/10 ML (2 MG/ML) AND [Suspect]
     Active Substance: DOXORUBICIN HYDROCHLORIDE
     Indication: CLEAR CELL SARCOMA OF THE KIDNEY
     Route: 065
  2. CARBOPLATIN. [Suspect]
     Active Substance: CARBOPLATIN
     Indication: CLEAR CELL SARCOMA OF THE KIDNEY
     Route: 065
  3. VINCRISTINE [Suspect]
     Active Substance: VINCRISTINE
     Indication: CLEAR CELL SARCOMA OF THE KIDNEY
     Route: 065
  4. CYCLOPHOSPHAMIDE. [Suspect]
     Active Substance: CYCLOPHOSPHAMIDE
     Indication: CLEAR CELL SARCOMA OF THE KIDNEY
     Dosage: ALTERNATING WITH CYCLOPHOSPHAMIDE, ETOPOSIDE, AND CARBOPLATIN EVERY 3 WEEKS.
     Route: 065
  5. CYCLOPHOSPHAMIDE. [Suspect]
     Active Substance: CYCLOPHOSPHAMIDE
     Dosage: RECEIVED 12 WEEKS OF NEOADJUVANT CHEMOTHERAPY WITH VINCRISTINE, DOXORUBICIN, AND CYCLOPHOSPHAMIDE
  6. ETOPOSIDE. [Suspect]
     Active Substance: ETOPOSIDE
     Indication: CLEAR CELL SARCOMA OF THE KIDNEY
     Route: 065

REACTIONS (1)
  - Septic shock [Unknown]
